FAERS Safety Report 5125991-5 (Version None)
Quarter: 2006Q4

REPORT INFORMATION
  Report Type: 
  Country: None (occurrence: None)
  Receive Date: 20061010
  Receipt Date: 20061010
  Transmission Date: 20070319
  Serious: Yes (Hospitalization)
  Sender: FDA-Public Use
  Company Number: None

PATIENT
  Age: 55 Year
  Sex: Female

DRUGS (6)
  1. IMATINIB MESYLATE [Suspect]
     Indication: GLIOBLASTOMA MULTIFORME
     Dosage: 400 MG QD
     Dates: start: 20060713
  2. PTK [Suspect]
     Indication: GLIOBLASTOMA MULTIFORME
     Dosage: 100MGBID
     Dates: start: 20060706
  3. HYDROXYUREA [Suspect]
     Indication: GLIOBLASTOMA MULTIFORME
     Dosage: 500 MGBID
     Dates: start: 20060713
  4. KEPPRA [Concomitant]
  5. PROTONIX [Concomitant]
  6. LEXAPRO [Concomitant]

REACTIONS (2)
  - DEEP VEIN THROMBOSIS [None]
  - THROMBOSIS [None]
